FAERS Safety Report 16530942 (Version 1)
Quarter: 2019Q3

REPORT INFORMATION
  Report Type: Report from Study
  Country: BR (occurrence: BR)
  Receive Date: 20190704
  Receipt Date: 20190704
  Transmission Date: 20191004
  Serious: Yes (Other)
  Sender: FDA-Public Use
  Company Number: PHHY2019BR150928

PATIENT
  Age: 60 Year
  Sex: Male

DRUGS (3)
  1. DIGETAL [Concomitant]
     Indication: CARDIAC FAILURE
     Route: 065
  2. CARVEDILOL. [Concomitant]
     Active Substance: CARVEDILOL
     Indication: CARDIAC FAILURE
     Route: 065
  3. LOSARTAN. [Suspect]
     Active Substance: LOSARTAN
     Indication: CARDIAC FAILURE
     Route: 065

REACTIONS (3)
  - Cardiac failure [Unknown]
  - Condition aggravated [Unknown]
  - Cardiac dysfunction [Unknown]
